FAERS Safety Report 7946402-8 (Version None)
Quarter: 2011Q4

REPORT INFORMATION
  Report Type: 
  Country: None (occurrence: None)
  Receive Date: 20111129
  Receipt Date: 20111114
  Transmission Date: 20120403
  Serious: Yes (Death, Other)
  Sender: FDA-Public Use
  Company Number: JP-WATSON-2011-19199

PATIENT
  Age: 44 Year
  Sex: Male

DRUGS (5)
  1. EFFEXOR XR [Suspect]
     Dosage: EMPTY BAG OF HAND-LABELED ^EFFEXN XR^
  2. AMITRIPTYLINE HCL [Suspect]
     Indication: PRODUCT USED FOR UNKNOWN INDICATION
     Dosage: EMPTY BAG OF HAND-LABELE ^AMITRIPTYL^
  3. BENICAR [Suspect]
     Indication: PRODUCT USED FOR UNKNOWN INDICATION
     Dosage: 2 EMPTY BOTTLES OF BENICAR (30 TABS/BOTTLE AT 40 MG EACH)
  4. AMLODIPINE [Suspect]
     Indication: PRODUCT USED FOR UNKNOWN INDICATION
     Dosage: EMPTY BOTTLE OF AMLODIPINE (90 TABS/BOTTLE  AT 10 MG EACH)
     Route: 065
  5. NORVASC [Suspect]
     Indication: PRODUCT USED FOR UNKNOWN INDICATION
     Dosage: 1 EMPTY BOTTLE OF 30 TABS/BOTTLE AT 10 MG EACH) AND A SECOND EMPTY BOTTLE OF 90 TABS/BOTTLE AT 10 MG

REACTIONS (2)
  - INTENTIONAL OVERDOSE [None]
  - TOXICITY TO VARIOUS AGENTS [None]
